FAERS Safety Report 4546334-1 (Version None)
Quarter: 2005Q1

REPORT INFORMATION
  Report Type: 
  Country: None (occurrence: None)
  Receive Date: 20050103
  Receipt Date: 20041222
  Transmission Date: 20050727
  Serious: Yes (Other)
  Sender: FDA-Public Use
  Company Number: 2004118167

PATIENT
  Age: 53 Year
  Sex: Male

DRUGS (4)
  1. CLINDAMYCIN HYDROCHLORIDE [Suspect]
     Indication: APICECTOMY
     Dosage: 450 MG (150 MG, THREE TIMES DAILY), ORAL
     Route: 048
     Dates: start: 20041108, end: 20041111
  2. CLAVULIN (AMOXICILLIN TRIHYDRATE, CLAVULANATE POTASSIUM) [Suspect]
     Indication: APICECTOMY
     Dosage: 1 TBSP (1 TBSP, SINGLE), ORAL
     Route: 048
     Dates: start: 20041109, end: 20041109
  3. HYLAK FORTE (AMINO ACIDS NOS, ENTEROCOCCUS FAECIUM, ESCHERICHIA COLI, [Concomitant]
  4. OMNIFLORA (ESCHERICHIA COLI, LYOPHILIZED, LACTOBACILLUS ACIDOPHILUS, L [Concomitant]

REACTIONS (2)
  - CIRCULATORY COLLAPSE [None]
  - DIARRHOEA [None]
